FAERS Safety Report 12313378 (Version 1)
Quarter: 2016Q2

REPORT INFORMATION
  Report Type: Report from Study
  Country: CN (occurrence: CN)
  Receive Date: 20160428
  Receipt Date: 20160428
  Transmission Date: 20160815
  Serious: Yes (Death, Hospitalization)
  Sender: FDA-Public Use
  Company Number: CN-ASTELLAS-2014US011236

PATIENT
  Age: 77 Year
  Sex: Female

DRUGS (1)
  1. ERLOTINIB [Suspect]
     Active Substance: ERLOTINIB
     Indication: NON-SMALL CELL LUNG CANCER
     Route: 048
     Dates: start: 20121213

REACTIONS (8)
  - Rash [Unknown]
  - Hypophagia [Unknown]
  - Dizziness [Unknown]
  - Blister [Unknown]
  - Nasopharyngitis [Unknown]
  - Sputum retention [Fatal]
  - Mouth ulceration [Unknown]
  - Nausea [Unknown]

NARRATIVE: CASE EVENT DATE: 20121213
